FAERS Safety Report 10079241 (Version 1)
Quarter: 2014Q2

REPORT INFORMATION
  Report Type: Spontaneous
  Country: US (occurrence: US)
  Receive Date: 20140415
  Receipt Date: 20140415
  Transmission Date: 20141212
  Serious: Yes (Other)
  Sender: FDA-Public Use
  Company Number: US-ASTRAZENECA-2014SE24660

PATIENT
  Age: 53 Year
  Sex: Male
  Weight: 154.2 kg

DRUGS (3)
  1. NEXIUM [Suspect]
     Indication: GASTROINTESTINAL EROSION
     Route: 048
     Dates: start: 2002
  2. NEXIUM [Suspect]
     Indication: GASTROINTESTINAL EROSION
     Route: 048
     Dates: start: 20131226
  3. CANCER DRUG UNKNOWN [Concomitant]

REACTIONS (8)
  - Haemorrhage [Unknown]
  - Gastrointestinal erosion [Unknown]
  - Renal cancer [Unknown]
  - Lung neoplasm [Unknown]
  - Upper gastrointestinal haemorrhage [Unknown]
  - Lower gastrointestinal haemorrhage [Unknown]
  - Off label use [Unknown]
  - Off label use [Unknown]
